FAERS Safety Report 25396277 (Version 1)
Quarter: 2025Q2

REPORT INFORMATION
  Report Type: Spontaneous
  Country: US (occurrence: None)
  Receive Date: 20250603
  Receipt Date: 20250603
  Transmission Date: 20250716
  Serious: Yes (Other)
  Sender: FDA-CTU
  Company Number: None

PATIENT
  Age: 3 Month
  Sex: Female
  Weight: 4.1 kg

DRUGS (1)
  1. TPN [Suspect]
     Active Substance: AMINO ACIDS\DEXTROSE\ELECTROLYTES NOS\SOYBEAN OIL
     Dosage: FREQUENCY : DAILY;?
     Route: 041
     Dates: start: 20250519, end: 20250519

REACTIONS (2)
  - Neonatal hyperglycaemia [None]
  - Infusion related reaction [None]

NARRATIVE: CASE EVENT DATE: 20250519
